FAERS Safety Report 22233703 (Version 1)
Quarter: 2023Q2

REPORT INFORMATION
  Report Type: Report from Study
  Country: AU (occurrence: AU)
  Receive Date: 20230420
  Receipt Date: 20230420
  Transmission Date: 20230722
  Serious: Yes (Hospitalization)
  Sender: FDA-Public Use
  Company Number: AU-TAKEDA-2022TUS081231

PATIENT
  Age: 34 Year
  Sex: Female

DRUGS (1)
  1. VEDOLIZUMAB [Suspect]
     Active Substance: VEDOLIZUMAB
     Indication: Colitis ulcerative
     Dosage: 300 MILLIGRAM
     Route: 042
     Dates: start: 20211216

REACTIONS (3)
  - Premature delivery [Recovered/Resolved]
  - Maternal exposure during breast feeding [Unknown]
  - Pregnancy [Recovered/Resolved]

NARRATIVE: CASE EVENT DATE: 20220711
